FAERS Safety Report 9808972 (Version 2)
Quarter: 2014Q1

REPORT INFORMATION
  Report Type: Report from Study
  Country: FR (occurrence: FR)
  Receive Date: 20140110
  Receipt Date: 20140115
  Transmission Date: 20141002
  Serious: Yes (Other)
  Sender: FDA-Public Use
  Company Number: FR-AMGEN-FRACT2013091868

PATIENT
  Sex: Male
  Weight: 3.29 kg

DRUGS (1)
  1. DENOSUMAB [Suspect]
     Indication: PRODUCT USED FOR UNKNOWN INDICATION
     Dosage: 120 MG, Q4WK
     Route: 064
     Dates: start: 20120216

REACTIONS (2)
  - Umbilical hernia [Unknown]
  - Exposure via father [Unknown]
